FAERS Safety Report 5980715-4 (Version None)
Quarter: 2008Q4

REPORT INFORMATION
  Report Type: 
  Country: None (occurrence: None)
  Receive Date: 20081205
  Receipt Date: 20080319
  Transmission Date: 20090506
  Serious: No
  Sender: FDA-Public Use
  Company Number: A0716349A

PATIENT
  Age: 54 Year
  Sex: Female

DRUGS (2)
  1. COMMIT [Suspect]
  2. PENICILLIN [Concomitant]

REACTIONS (3)
  - MALAISE [None]
  - NAUSEA [None]
  - VOMITING [None]
